FAERS Safety Report 6112054-5 (Version None)
Quarter: 2009Q1

REPORT INFORMATION
  Report Type: 
  Country: None (occurrence: None)
  Receive Date: 20090311
  Receipt Date: 20090226
  Transmission Date: 20090719
  Serious: Yes (Hospitalization, Other)
  Sender: FDA-Public Use
  Company Number: US-PFIZER INC-2009179163

PATIENT
  Sex: Male
  Weight: 13.152 kg

DRUGS (4)
  1. GEODON [Suspect]
     Indication: BIPOLAR DISORDER
     Dates: end: 20090201
  2. PROZAC [Concomitant]
  3. STRATTERA [Concomitant]
  4. LITHIUM CARBONATE [Concomitant]

REACTIONS (3)
  - BIPOLAR DISORDER [None]
  - ELECTROCARDIOGRAM QT PROLONGED [None]
  - INSOMNIA [None]
